FAERS Safety Report 24702926 (Version 1)
Quarter: 2024Q4

REPORT INFORMATION
  Report Type: Spontaneous
  Country: TR (occurrence: TR)
  Receive Date: 20241205
  Receipt Date: 20241205
  Transmission Date: 20250114
  Serious: Yes (Other)
  Sender: SANDOZ
  Company Number: TR-SANDOZ-SDZ2024TR100274

PATIENT
  Age: 8 Year
  Sex: Male

DRUGS (1)
  1. TACROLIMUS [Suspect]
     Active Substance: TACROLIMUS
     Indication: Petechiae
     Dosage: 1.5 MG
     Route: 065

REACTIONS (1)
  - Immune thrombocytopenia [Unknown]
